FAERS Safety Report 6616720-4 (Version None)
Quarter: 2010Q1

REPORT INFORMATION
  Report Type: 
  Country: None (occurrence: None)
  Receive Date: 20100305
  Receipt Date: 20100224
  Transmission Date: 20100710
  Serious: Yes (Other)
  Sender: FDA-Public Use
  Company Number: DE-ABBOTT-10P-062-0628596-00

PATIENT

DRUGS (3)
  1. ERGENYL [Suspect]
     Indication: HEREDITARY DISORDER
  2. CHOLESTEROL [Concomitant]
     Indication: DRUG USE FOR UNKNOWN INDICATION
  3. MOVICOL [Concomitant]
     Indication: DRUG USE FOR UNKNOWN INDICATION

REACTIONS (2)
  - ANTICONVULSANT DRUG LEVEL BELOW THERAPEUTIC [None]
  - EPILEPSY [None]
